FAERS Safety Report 11844787 (Version 2)
Quarter: 2016Q1

REPORT INFORMATION
  Report Type: Spontaneous
  Country: US (occurrence: US)
  Receive Date: 20151217
  Receipt Date: 20160113
  Transmission Date: 20160526
  Serious: Yes (Other)
  Sender: FDA-Public Use
  Company Number: US-LPDUSPRD-20150998

PATIENT
  Age: 67 Year
  Sex: Female

DRUGS (5)
  1. FENTANYL. [Suspect]
     Active Substance: FENTANYL
     Dosage: 50 MCG
     Route: 065
  2. FLUMAZENIL. [Concomitant]
     Active Substance: FLUMAZENIL
     Dosage: 0.25 MG
     Route: 065
  3. MIDAZOLAM [Suspect]
     Active Substance: MIDAZOLAM\MIDAZOLAM HYDROCHLORIDE
     Dosage: 3 MG
     Route: 065
  4. METHOHEXITAL [Suspect]
     Active Substance: METHOHEXITAL
     Dosage: 20 MG
     Route: 065
  5. ATROPINE SULFATE INJECTION, USP (0101-25) 1MG/ML [Suspect]
     Active Substance: ATROPINE SULFATE
     Dosage: TOTAL 2 MG IN 0.5 INCREMENTS
     Route: 065

REACTIONS (4)
  - Drug interaction [Unknown]
  - Delirium [Unknown]
  - Sedation [Unknown]
  - Toxicity to various agents [Unknown]
